FAERS Safety Report 19444694 (Version 1)
Quarter: 2021Q2

REPORT INFORMATION
  Report Type: Spontaneous
  Country: IR (occurrence: IR)
  Receive Date: 20210621
  Receipt Date: 20210621
  Transmission Date: 20210717
  Serious: Yes (Hospitalization, Other)
  Sender: FDA-Public Use
  Company Number: IR-SA-2021SA204218

PATIENT
  Age: 82 Year
  Sex: Male

DRUGS (9)
  1. CLOPIDOGREL BISULFATE. [Suspect]
     Active Substance: CLOPIDOGREL BISULFATE
     Indication: ANTIPLATELET THERAPY
     Dosage: 75 MG
  2. OMEGA 3 [FISH OIL] [Suspect]
     Active Substance: FISH OIL
     Indication: PROPHYLAXIS
     Dosage: LOADING DOSE 12 HOURS BEFORE THE PROCEDURE
  3. OMEGA 3 [FISH OIL] [Suspect]
     Active Substance: FISH OIL
     Dosage: 1000 MG,THE DAY AFTER THE PROCEDURE
  4. ATORVASTATIN [Concomitant]
     Active Substance: ATORVASTATIN
  5. ACETYLSALICYLIC ACID [Suspect]
     Active Substance: ASPIRIN
     Indication: PROPHYLAXIS
     Dosage: LOADING DOSE
  6. CLOPIDOGREL BISULFATE. [Suspect]
     Active Substance: CLOPIDOGREL BISULFATE
     Indication: PROPHYLAXIS
     Dosage: LOADING DOSE
  7. AMLODIPINE [Concomitant]
     Active Substance: AMLODIPINE BESYLATE
  8. LOSARTAN. [Concomitant]
     Active Substance: LOSARTAN
  9. ACETYLSALICYLIC ACID [Suspect]
     Active Substance: ASPIRIN
     Indication: ANTIPLATELET THERAPY
     Dosage: 80 MG, QD

REACTIONS (8)
  - Headache [Recovering/Resolving]
  - Hemiparesis [Recovered/Resolved]
  - Oedema peripheral [Recovering/Resolving]
  - Drug interaction [Recovering/Resolving]
  - Condition aggravated [Recovered/Resolved]
  - Haemorrhage intracranial [Recovering/Resolving]
  - Haemorrhagic transformation stroke [Recovering/Resolving]
  - Urinary incontinence [Recovering/Resolving]
